FAERS Safety Report 24251971 (Version 2)
Quarter: 2024Q3

REPORT INFORMATION
  Report Type: Report from Study
  Country: US (occurrence: US)
  Receive Date: 20240827
  Receipt Date: 20240916
  Transmission Date: 20241017
  Serious: No
  Sender: ACADIA PHARMACEUTICALS
  Company Number: US-ACADIA PHARMACEUTICALS INC.-ACA-2024-PIM-004326

PATIENT
  Sex: Male

DRUGS (1)
  1. NUPLAZID [Suspect]
     Active Substance: PIMAVANSERIN TARTRATE
     Indication: Parkinson^s disease psychosis
     Dosage: 34 MILLIGRAM, QD
     Route: 048
     Dates: start: 20240806, end: 20240809

REACTIONS (8)
  - Anger [Unknown]
  - Disorientation [Unknown]
  - Emotional distress [Unknown]
  - Screaming [Unknown]
  - Memory impairment [Unknown]
  - Dementia [Not Recovered/Not Resolved]
  - Agitation [Unknown]
  - Aggression [Unknown]
